FAERS Safety Report 18676262 (Version 1)
Quarter: 2020Q4

REPORT INFORMATION
  Report Type: Spontaneous
  Country: US (occurrence: US)
  Receive Date: 20201229
  Receipt Date: 20201229
  Transmission Date: 20210114
  Serious: Yes (Other)
  Sender: FDA-Public Use
  Company Number: US-BAYER-2020-285783

PATIENT

DRUGS (1)
  1. ACETYLSALICYLIC ACID [Suspect]
     Active Substance: ASPIRIN

REACTIONS (5)
  - Ultrasound foetal abnormal [None]
  - Premature baby [None]
  - Foetal growth restriction [None]
  - Foetal exposure during pregnancy [None]
  - Foetal heart rate abnormal [None]
